FAERS Safety Report 10056358 (Version 3)
Quarter: 2014Q4

REPORT INFORMATION
  Report Type: Report from Study
  Country: MX (occurrence: MX)
  Receive Date: 20140403
  Receipt Date: 20141030
  Transmission Date: 20150528
  Serious: Yes (Other)
  Sender: FDA-Public Use
  Company Number: PHHY2014MX039819

PATIENT
  Age: 75 Year
  Sex: Male

DRUGS (6)
  1. DEXIVANT [Concomitant]
     Indication: GASTRITIS PROPHYLAXIS
     Dosage: 1 DF, QD (DAILY)
     Route: 065
     Dates: start: 201303
  2. TRADJENTA [Concomitant]
     Active Substance: LINAGLIPTIN
     Indication: BLOOD GLUCOSE ABNORMAL
     Dosage: 1 DF, QD (DAILY)
     Route: 065
     Dates: start: 201303
  3. EXFORGE [Suspect]
     Active Substance: AMLODIPINE BESYLATE\VALSARTAN
     Dosage: 0.5 DF (160/ 10 MG), QD (DAILY)
     Route: 048
     Dates: start: 20140321
  4. EXFORGE [Suspect]
     Active Substance: AMLODIPINE BESYLATE\VALSARTAN
     Indication: HYPERTENSION
     Dosage: 1 DF (320/5 MG), QD (DAILY)
     Route: 048
  5. GABAPENTIN. [Concomitant]
     Active Substance: GABAPENTIN
     Indication: NEUROPATHY PERIPHERAL
     Dosage: 2 DF, Q12H (DAILY)
     Route: 065
  6. COMBODART [Concomitant]
     Active Substance: DUTASTERIDE\TAMSULOSIN
     Indication: URINARY TRACT DISORDER
     Dosage: 1 DF, QD (DAILY)
     Route: 065
     Dates: start: 201307

REACTIONS (9)
  - Wrong technique in drug usage process [Unknown]
  - Blood disorder [Unknown]
  - Contusion [Unknown]
  - Blood pressure decreased [Unknown]
  - General physical health deterioration [Not Recovered/Not Resolved]
  - Cerebrovascular accident [Unknown]
  - Carotid artery occlusion [Unknown]
  - Speech disorder [Unknown]
  - Coagulopathy [Unknown]

NARRATIVE: CASE EVENT DATE: 20130326
